FAERS Safety Report 7963813-5 (Version None)
Quarter: 2011Q4

REPORT INFORMATION
  Report Type: 
  Country: None (occurrence: None)
  Receive Date: 20111208
  Receipt Date: 20111108
  Transmission Date: 20120403
  Serious: No
  Sender: FDA-Public Use
  Company Number: US-BAYER-2011-109701

PATIENT

DRUGS (5)
  1. CLARITIN [Concomitant]
     Dosage: UNK
  2. NEULASTA [Concomitant]
  3. ALEVE (CAPLET) [Suspect]
     Route: 048
  4. TAXOTERE [Concomitant]
  5. CYTOXAN [Concomitant]

REACTIONS (1)
  - PAIN [None]
